FAERS Safety Report 22790615 (Version 2)
Quarter: 2023Q4

REPORT INFORMATION
  Report Type: Report from Study
  Country: AT (occurrence: AT)
  Receive Date: 20230805
  Receipt Date: 20231030
  Transmission Date: 20240110
  Serious: Yes (Hospitalization, Other)
  Sender: FDA-Public Use
  Company Number: AT-ROCHE-3226138

PATIENT
  Age: 64 Year
  Sex: Female

DRUGS (52)
  1. DOXORUBICIN [Suspect]
     Active Substance: DOXORUBICIN
     Indication: HER2 positive breast cancer
     Dates: start: 20220627, end: 20220818
  2. TUCATINIB [Suspect]
     Active Substance: TUCATINIB
     Indication: HER2 positive breast cancer
     Dates: start: 20210509, end: 20210528
  3. TUCATINIB [Suspect]
     Active Substance: TUCATINIB
     Dates: start: 20210108, end: 20210428
  4. TUCATINIB [Suspect]
     Active Substance: TUCATINIB
     Dates: start: 20201120, end: 20210108
  5. PERTUZUMAB\TRASTUZUMAB [Suspect]
     Active Substance: PERTUZUMAB\TRASTUZUMAB
     Indication: HER2 positive breast cancer
     Dates: start: 20220627, end: 20220818
  6. KADCYLA [Suspect]
     Active Substance: ADO-TRASTUZUMAB EMTANSINE
     Indication: HER2 positive breast cancer
     Dosage: MOST RECENT DOSE PRIOR TO AE 26/AUG/2020
     Dates: start: 20200129, end: 20200826
  7. KADCYLA [Suspect]
     Active Substance: ADO-TRASTUZUMAB EMTANSINE
     Dosage: MOST RECENT DOSE PRIOR TO AE
     Route: 065
     Dates: start: 20200826
  8. SACITUZUMAB GOVITECAN [Suspect]
     Active Substance: SACITUZUMAB GOVITECAN
     Indication: HER2 positive breast cancer
     Dosage: D1+D8, Q21D
     Dates: start: 20221207, end: 20230105
  9. PERJETA [Suspect]
     Active Substance: PERTUZUMAB
     Indication: HER2 positive breast cancer
     Dates: start: 20190315, end: 20190315
  10. PERJETA [Suspect]
     Active Substance: PERTUZUMAB
     Dates: start: 20190403, end: 20200103
  11. PERJETA [Suspect]
     Active Substance: PERTUZUMAB
     Dosage: MOST RECENT DOSE PRIOR TO AE 03/JAN/2020
     Dates: start: 20190315
  12. PERJETA [Suspect]
     Active Substance: PERTUZUMAB
     Dosage: MOST RECENT DOSE PRIOR TO AE
     Dates: start: 20200103
  13. HERCEPTIN [Suspect]
     Active Substance: TRASTUZUMAB
     Indication: HER2 positive breast cancer
     Dosage: MOST RECENT DOSE PRIOR TO AE 21/OCT/2020,
     Dates: start: 20190315, end: 20200103
  14. HERCEPTIN [Suspect]
     Active Substance: TRASTUZUMAB
     Indication: HER2 positive breast cancer
     Dates: start: 20190315, end: 20190315
  15. HERCEPTIN [Suspect]
     Active Substance: TRASTUZUMAB
     Dosage: MOST RECENT DOSE PRIOR TO AE 21/OCT/2020
     Dates: start: 20190403, end: 20200103
  16. ERIBULIN MESYLATE [Suspect]
     Active Substance: ERIBULIN MESYLATE
     Indication: HER2 positive breast cancer
     Dosage: D1+D8. Q21D,
     Dates: start: 20230209, end: 20230322
  17. FAM-TRASTUZUMAB DERUXTECAN-NXKI [Suspect]
     Active Substance: FAM-TRASTUZUMAB DERUXTECAN-NXKI
     Indication: HER2 positive breast cancer
     Dates: start: 20210721, end: 20210811
  18. FAM-TRASTUZUMAB DERUXTECAN-NXKI [Suspect]
     Active Substance: FAM-TRASTUZUMAB DERUXTECAN-NXKI
     Dates: start: 20220302, end: 20220512
  19. FAM-TRASTUZUMAB DERUXTECAN-NXKI [Suspect]
     Active Substance: FAM-TRASTUZUMAB DERUXTECAN-NXKI
     Dates: start: 20220118, end: 20220209
  20. FAM-TRASTUZUMAB DERUXTECAN-NXKI [Suspect]
     Active Substance: FAM-TRASTUZUMAB DERUXTECAN-NXKI
     Dates: start: 20210901, end: 20211228
  21. FAM-TRASTUZUMAB DERUXTECAN-NXKI [Suspect]
     Active Substance: FAM-TRASTUZUMAB DERUXTECAN-NXKI
     Dates: start: 20210628, end: 20210628
  22. TRASTUZUMAB [Suspect]
     Active Substance: TRASTUZUMAB
     Indication: HER2 positive breast cancer
     Dates: start: 20201021, end: 20210429
  23. XELODA [Suspect]
     Active Substance: CAPECITABINE
     Indication: HER2 positive breast cancer
     Dosage: FREQUENCY: OTHER MOST RECENT DOSE PRIOR TO THE EVENT: 19/JAN/2021, D1-14. Q21D
     Dates: start: 20210119, end: 20210522
  24. XELODA [Suspect]
     Active Substance: CAPECITABINE
     Dosage: FREQUENCY: OTHER MOST RECENT DOSE PRIOR TO THE EVENT: 19/JAN/2021, D1-D14, Q21D
     Dates: start: 20201031, end: 20201120
  25. XELODA [Suspect]
     Active Substance: CAPECITABINE
     Dosage: FREQUENCY: OTHER MOST RECENT DOSE PRIOR TO THE EVENT: 19/JAN/2021, D1-14. Q21D
     Dates: start: 20201121, end: 20201218
  26. NAVELBINE [Suspect]
     Active Substance: VINORELBINE TARTRATE
     Indication: HER2 positive breast cancer
     Dates: start: 20190918, end: 20200103
  27. NAVELBINE [Suspect]
     Active Substance: VINORELBINE TARTRATE
     Dates: start: 20190315, end: 20190625
  28. DEXAMETHASONE [Concomitant]
     Active Substance: DEXAMETHASONE
     Indication: Prophylaxis
     Dosage: ONGOING = CHECKED, D1,2 AND 3 OF EACH CYCLE OF TDXT,
     Dates: start: 20210628, end: 20220514
  29. DEXAMETHASONE [Concomitant]
     Active Substance: DEXAMETHASONE
     Indication: Prophylaxis
     Dosage: ONGOING = CHECKED, D1,2 AND 3 OF EACH CYCLE OF TDXT
     Dates: start: 20221208, end: 20230107
  30. DEXAMETHASONE [Concomitant]
     Active Substance: DEXAMETHASONE
     Dosage: DAY 1 OF EACH CYCLE OF SACITUZUMAB-GOVIT
     Dates: start: 20221207, end: 20230105
  31. DEXAMETHASONE [Concomitant]
     Active Substance: DEXAMETHASONE
     Dosage: DAY 1 OF EACH CYCLE OF SACITUZUMAB-GOVIT
     Dates: start: 20230209
  32. AMOXICILLIN\CLAVULANATE POTASSIUM [Concomitant]
     Active Substance: AMOXICILLIN\CLAVULANATE POTASSIUM
     Indication: Product used for unknown indication
     Dosage: 16 OCT 2019 } EXANTHEMA AREA OF CLAVICULA
     Dates: start: 20191030, end: 20191107
  33. EMEND [Concomitant]
     Active Substance: APREPITANT
     Indication: Nausea
     Dosage: ONGOING = CHECKED, D1
     Dates: start: 20210722
  34. EMEND [Concomitant]
     Active Substance: APREPITANT
     Dosage: ONGOING = CHECKED, D1-14
     Dates: start: 20210721
  35. ZOFRAN [Concomitant]
     Active Substance: ONDANSETRON HYDROCHLORIDE
     Indication: Prophylaxis
     Dosage: ONGOING = CHECKED, D1 AND D2 OF EACH CYCLE OF CAELYX
     Dates: start: 20221207, end: 20230105
  36. ZOFRAN [Concomitant]
     Active Substance: ONDANSETRON HYDROCHLORIDE
     Dosage: ONGOING = CHECKED
     Dates: start: 20190315
  37. PREDNISOLONE SODIUM SUCCINATE [Concomitant]
     Active Substance: PREDNISOLONE SODIUM SUCCINATE
     Indication: Prophylaxis
     Dosage: D1 OF EACH CYCLE OF CAELYX
     Dates: start: 20220627, end: 20220915
  38. LOPERAMIDE HYDROCHLORIDE [Concomitant]
     Active Substance: LOPERAMIDE HYDROCHLORIDE
     Indication: Prophylaxis
     Dosage: ONGOING = CHECKED
     Dates: start: 20190315
  39. POLYETHYLENE GLYCOL 3350\POTASSIUM CHLORIDE\SODIUM BICARBONATE\SODIUM [Concomitant]
     Active Substance: POLYETHYLENE GLYCOL 3350\POTASSIUM CHLORIDE\SODIUM BICARBONATE\SODIUM CHLORIDE
     Indication: Prophylaxis
     Dosage: ONGOING = CHECKED SACHET
     Dates: start: 20210722
  40. APREPITANT [Concomitant]
     Active Substance: APREPITANT
     Indication: Product used for unknown indication
     Dosage: ONGOING = CHECKED, D1 OF EACH CYCLE OF TDXT,
     Dates: start: 20210721, end: 20220512
  41. APREPITANT [Concomitant]
     Active Substance: APREPITANT
     Dosage: ONGOING = CHECKED, D2+D3 OF EACH CYCLE OF TDXT
     Dates: start: 20210722, end: 20220514
  42. ESOMEPRAZOLE [Concomitant]
     Active Substance: ESOMEPRAZOLE
     Indication: Prophylaxis
     Dosage: ONGOING = CHECKED,
     Dates: start: 20190726
  43. ESOMEPRAZOLE [Concomitant]
     Active Substance: ESOMEPRAZOLE
     Indication: Abdominal pain upper
     Dosage: ONGOING = CHECKED
     Dates: start: 20211215
  44. SUCRALFATE [Concomitant]
     Active Substance: SUCRALFATE
     Indication: Prophylaxis
     Dosage: ONGOING = CHECKED
     Dates: start: 20190403
  45. ZYPREXA [Concomitant]
     Active Substance: OLANZAPINE
     Indication: Nausea
     Dosage: ONGOING = CHECKED, D14
     Dates: start: 20210721
  46. DIPHENHYDRAMINE [Concomitant]
     Active Substance: DIPHENHYDRAMINE
     Indication: Prophylaxis
     Dosage: DAY 1 OF EACH CYCLE OF SACITUZUMAB-GOV
     Dates: start: 20221207, end: 20230105
  47. METOCLOPRAMIDE HYDROCHLORIDE [Concomitant]
     Active Substance: METOCLOPRAMIDE HYDROCHLORIDE
     Indication: Nausea
     Dosage: ONGOING = CHECKED
     Dates: start: 20210708
  48. ACETAMINOPHEN [Concomitant]
     Active Substance: ACETAMINOPHEN
     Indication: Prophylaxis
     Dosage: DAY 1 OF EACH CYCLE OF SACITUZUMAB-GOV
     Dates: start: 20221207, end: 20230105
  49. NADROPARIN CALCIUM [Concomitant]
     Active Substance: NADROPARIN CALCIUM
     Indication: Prophylaxis
     Dosage: ONGOING = CHECKED 0.30 ML (MILLILITER; CM3)
     Dates: start: 20190208
  50. ONDANSETRON [Concomitant]
     Active Substance: ONDANSETRON
     Indication: Prophylaxis
     Dates: start: 20221208, end: 20230107
  51. ONDANSETRON [Concomitant]
     Active Substance: ONDANSETRON
     Dates: start: 20230209
  52. ONDANSETRON [Concomitant]
     Active Substance: ONDANSETRON
     Dates: start: 20221207, end: 20230105

REACTIONS (2)
  - Pneumothorax [Recovered/Resolved with Sequelae]
  - Pneumonia [Not Recovered/Not Resolved]

NARRATIVE: CASE EVENT DATE: 20221115
